FAERS Safety Report 6397125-0 (Version None)
Quarter: 2009Q4

REPORT INFORMATION
  Report Type: 
  Country: None (occurrence: None)
  Receive Date: 20091012
  Receipt Date: 20090929
  Transmission Date: 20100525
  Serious: Yes (Death, Life-Threatening, Hospitalization, Disabling, Other)
  Sender: FDA-Public Use
  Company Number: A0809771A

PATIENT
  Age: 66 Year
  Sex: Male
  Weight: 71.4 kg

DRUGS (11)
  1. EPZICOM [Suspect]
     Indication: HIV INFECTION
     Dosage: 1TAB PER DAY
     Route: 048
     Dates: start: 20090513, end: 20090806
  2. LEXIVA [Suspect]
     Indication: HIV INFECTION
     Dosage: 700MG TWICE PER DAY
     Route: 048
     Dates: start: 20090513, end: 20090807
  3. LEXIVA [Suspect]
     Route: 048
     Dates: start: 20060101
  4. COREG [Concomitant]
     Indication: DRUG USE FOR UNKNOWN INDICATION
     Route: 048
  5. NORVIR [Concomitant]
     Indication: HIV INFECTION
     Dosage: 100MG TWICE PER DAY
     Dates: start: 20090513, end: 20090729
  6. ISENTRESS [Concomitant]
     Dosage: 400MG TWICE PER DAY
     Dates: start: 20090513
  7. LIPITOR [Concomitant]
  8. COREG [Concomitant]
  9. PLAVIX [Concomitant]
  10. VIDEX [Concomitant]
     Indication: HIV INFECTION
     Dates: start: 20060101
  11. EPIVIR [Concomitant]
     Indication: HIV INFECTION
     Dates: start: 20060101

REACTIONS (7)
  - COLITIS [None]
  - DIARRHOEA [None]
  - DRUG HYPERSENSITIVITY [None]
  - HAEMODYNAMIC INSTABILITY [None]
  - MULTI-ORGAN FAILURE [None]
  - RASH MACULO-PAPULAR [None]
  - SERRATIA SEPSIS [None]
